FAERS Safety Report 25010554 (Version 1)
Quarter: 2025Q1

REPORT INFORMATION
  Report Type: Spontaneous
  Country: US (occurrence: US)
  Receive Date: 20250225
  Receipt Date: 20250225
  Transmission Date: 20250409
  Serious: No
  Sender: SANDOZ
  Company Number: US-SANDOZ-SDZ2025US011436

PATIENT
  Sex: Male

DRUGS (1)
  1. ALBUTEROL SULFATE [Suspect]
     Active Substance: ALBUTEROL SULFATE
     Indication: Cough
     Route: 048

REACTIONS (3)
  - Product dose omission issue [Not Recovered/Not Resolved]
  - Off label use [Not Recovered/Not Resolved]
  - Device mechanical issue [Not Recovered/Not Resolved]
